FAERS Safety Report 14829073 (Version 1)
Quarter: 2018Q2

REPORT INFORMATION
  Report Type: Spontaneous
  Country: DE (occurrence: DE)
  Receive Date: 20180430
  Receipt Date: 20180430
  Transmission Date: 20180711
  Serious: Yes (Other)
  Sender: FDA-Public Use
  Company Number: DE-ABBVIE-18K-062-2339497-00

PATIENT
  Sex: Female
  Weight: 72 kg

DRUGS (1)
  1. HUMIRA [Suspect]
     Active Substance: ADALIMUMAB
     Indication: CROHN^S DISEASE
     Route: 058
     Dates: start: 201801

REACTIONS (4)
  - Cerebral vasoconstriction [Unknown]
  - Hyperhidrosis [Unknown]
  - Visual impairment [Unknown]
  - Head discomfort [Unknown]

NARRATIVE: CASE EVENT DATE: 2018
